FAERS Safety Report 7467427-5 (Version None)
Quarter: 2011Q2

REPORT INFORMATION
  Report Type: 
  Country: None (occurrence: None)
  Receive Date: 20110509
  Receipt Date: 20110428
  Transmission Date: 20111010
  Serious: Yes (Other)
  Sender: FDA-Public Use
  Company Number: FR-JNJFOC-20110501409

PATIENT
  Age: 28 Year
  Sex: Female

DRUGS (1)
  1. STELARA [Suspect]
     Indication: GUTTATE PSORIASIS
     Route: 058

REACTIONS (3)
  - PSORIASIS [None]
  - URTICARIA [None]
  - OFF LABEL USE [None]
